FAERS Safety Report 15821495 (Version 1)
Quarter: 2019Q1

REPORT INFORMATION
  Report Type: Spontaneous
  Country: US (occurrence: US)
  Receive Date: 20190114
  Receipt Date: 20190114
  Transmission Date: 20190417
  Serious: Yes (Death)
  Sender: FDA-Public Use
  Company Number: US-ENDO PHARMACEUTICALS INC-2018-040502

PATIENT
  Age: 32 Year
  Sex: Male
  Weight: 91.8 kg

DRUGS (3)
  1. SOMA [Suspect]
     Active Substance: CARISOPRODOL
     Indication: PAIN MANAGEMENT
     Dosage: 350 MG, UNKNOWN
     Route: 065
  2. PERCOCET [Suspect]
     Active Substance: ACETAMINOPHEN\OXYCODONE HYDROCHLORIDE
     Indication: PAIN MANAGEMENT
     Dosage: 5-325 MG, UNKNOWN
     Route: 065
  3. OPANA [Suspect]
     Active Substance: OXYMORPHONE HYDROCHLORIDE
     Indication: PAIN MANAGEMENT
     Dosage: 10 MG, UNKNOWN
     Route: 065

REACTIONS (3)
  - Drug abuse [Fatal]
  - Death [Fatal]
  - Accidental overdose [Fatal]

NARRATIVE: CASE EVENT DATE: 20110813
